FAERS Safety Report 9960581 (Version 1)
Quarter: 2014Q1

REPORT INFORMATION
  Report Type: Report from Study
  Country: US (occurrence: US)
  Receive Date: 20140305
  Receipt Date: 20140305
  Transmission Date: 20141002
  Serious: No
  Sender: FDA-Public Use
  Company Number: US-ABBVIE-13P-163-1110284-00

PATIENT
  Age: 71 Year
  Sex: Male
  Weight: 76.27 kg

DRUGS (10)
  1. HUMIRA [Suspect]
     Indication: ANKYLOSING SPONDYLITIS
     Dates: start: 20130604
  2. CELEBREX [Concomitant]
     Indication: ANKYLOSING SPONDYLITIS
  3. LEXAPRO [Concomitant]
     Indication: ANXIETY
  4. ADDERALL [Concomitant]
     Indication: ATTENTION DEFICIT/HYPERACTIVITY DISORDER
  5. MAGNESIUM [Concomitant]
     Indication: PRODUCT USED FOR UNKNOWN INDICATION
  6. CITRATE [Concomitant]
     Indication: PRODUCT USED FOR UNKNOWN INDICATION
  7. VITAMIN B [Concomitant]
     Indication: PRODUCT USED FOR UNKNOWN INDICATION
  8. VITAMIN FOR EYES [Concomitant]
     Indication: MACULAR DEGENERATION
  9. PROBOTIC [Concomitant]
     Indication: GASTRIC DISORDER
  10. ZANTAC [Concomitant]
     Indication: ABDOMINAL PAIN UPPER

REACTIONS (4)
  - Abdominal distension [Recovering/Resolving]
  - Muscle spasms [Not Recovered/Not Resolved]
  - Abdominal pain upper [Unknown]
  - Abdominal pain upper [Unknown]
